FAERS Safety Report 4465763-8 (Version None)
Quarter: 2004Q4

REPORT INFORMATION
  Report Type: 
  Country: None (occurrence: None)
  Receive Date: 20041001
  Receipt Date: 20041001
  Transmission Date: 20050328
  Serious: Yes (Hospitalization)
  Sender: FDA-Public Use
  Company Number: None

PATIENT
  Age: 74 Year
  Sex: Female
  Weight: 71 kg

DRUGS (1)
  1. RITUXIMAB [Suspect]
     Indication: NON-HODGKIN'S LYMPHOMA
     Dosage: 375 MG/M2 IV X 1
     Route: 042
     Dates: start: 20040930

REACTIONS (3)
  - INFUSION RELATED REACTION [None]
  - OROPHARYNGEAL SWELLING [None]
  - URTICARIA [None]
